FAERS Safety Report 5105164-2 (Version None)
Quarter: 2006Q3

REPORT INFORMATION
  Report Type: 
  Country: None (occurrence: None)
  Receive Date: 20060911
  Receipt Date: 20060829
  Transmission Date: 20061208
  Serious: Yes (Other)
  Sender: FDA-Public Use
  Company Number: 2006105948

PATIENT
  Sex: Female
  Weight: 60.3284 kg

DRUGS (3)
  1. LYRICA [Suspect]
     Indication: NEUROPATHY
     Dosage: 150 MG (50 MG, 3 IN 1 D)
     Dates: start: 20060101
  2. ALL OTHER THERAPEUTIC PRODUCTS (ALL OTHER THERAPEUTIC PRODUCTS) [Concomitant]
  3. INSULIN (INSULIN) [Concomitant]

REACTIONS (4)
  - DRUG INEFFECTIVE [None]
  - STENT PLACEMENT [None]
  - URINARY TRACT INFECTION [None]
  - VASCULAR OCCLUSION [None]
